FAERS Safety Report 5974592-5 (Version None)
Quarter: 2008Q4

REPORT INFORMATION
  Report Type: 
  Country: None (occurrence: None)
  Receive Date: 20081201
  Receipt Date: 20080201
  Transmission Date: 20090506
  Serious: No
  Sender: FDA-Public Use
  Company Number: US-AMGEN-KDL260126

PATIENT
  Sex: Female

DRUGS (1)
  1. ENBREL [Suspect]
     Indication: RHEUMATOID ARTHRITIS
     Route: 058
     Dates: start: 20031001

REACTIONS (6)
  - INJECTION SITE DISCOMFORT [None]
  - NASOPHARYNGITIS [None]
  - PARANASAL SINUS HYPERSECRETION [None]
  - RHEUMATOID ARTHRITIS [None]
  - SINUS HEADACHE [None]
  - SINUSITIS [None]
